FAERS Safety Report 6549197-8 (Version None)
Quarter: 2010Q1

REPORT INFORMATION
  Report Type: 
  Country: None (occurrence: None)
  Receive Date: 20100125
  Receipt Date: 20100115
  Transmission Date: 20100710
  Serious: Yes (Hospitalization, Other)
  Sender: FDA-Public Use
  Company Number: US-BRISTOL-MYERS SQUIBB COMPANY-14918536

PATIENT
  Age: 80 Year
  Sex: Male

DRUGS (1)
  1. DASATINIB [Suspect]
     Indication: PROSTATE CANCER
     Route: 048
     Dates: start: 20090708, end: 20091229

REACTIONS (5)
  - COUGH [None]
  - FALL [None]
  - FATIGUE [None]
  - HYPONATRAEMIA [None]
  - PYREXIA [None]
